FAERS Safety Report 19220045 (Version 2)
Quarter: 2021Q3

REPORT INFORMATION
  Report Type: Report from Study
  Country: US (occurrence: US)
  Receive Date: 20210505
  Receipt Date: 20210810
  Transmission Date: 20211014
  Serious: No
  Sender: FDA-Public Use
  Company Number: US-GW PHARMA-202104USGW02158

PATIENT

DRUGS (1)
  1. EPIDIOLEX [Suspect]
     Active Substance: CANNABIDIOL
     Indication: PRODUCT USED FOR UNKNOWN INDICATION
     Dosage: 250 MG (SHOULD BE TAKING 350 MG AS ADVISED BY PHYSICIAN, BUT ONLY HAD A SCRIPT FOR 250 MG)
     Route: 048
     Dates: start: 20200122

REACTIONS (8)
  - Circumstance or information capable of leading to medication error [Unknown]
  - Memory impairment [Unknown]
  - Fear [Unknown]
  - Disorientation [Unknown]
  - Feeling abnormal [Unknown]
  - Nervousness [Unknown]
  - Incorrect dose administered [Unknown]
  - Seizure [Recovered/Resolved with Sequelae]

NARRATIVE: CASE EVENT DATE: 202104
